FAERS Safety Report 7323490-3 (Version None)
Quarter: 2011Q1

REPORT INFORMATION
  Report Type: 
  Country: None (occurrence: None)
  Receive Date: 20110301
  Receipt Date: 20110216
  Transmission Date: 20110831
  Serious: Yes (Hospitalization, Other)
  Sender: FDA-Public Use
  Company Number: PHHY2011US00569

PATIENT
  Sex: Female
  Weight: 71.655 kg

DRUGS (1)
  1. EXJADE [Suspect]
     Dosage: 1500 MG, DAILY
     Route: 048
     Dates: start: 20101110

REACTIONS (5)
  - PNEUMONIA ASPIRATION [None]
  - LUNG INFECTION PSEUDOMONAL [None]
  - DYSPNOEA [None]
  - VOMITING [None]
  - HYPOXIA [None]
